FAERS Safety Report 5708137-1 (Version None)
Quarter: 2008Q2

REPORT INFORMATION
  Report Type: 
  Country: None (occurrence: None)
  Receive Date: 20080417
  Receipt Date: 20080410
  Transmission Date: 20081010
  Serious: Yes (Other)
  Sender: FDA-Public Use
  Company Number: B0359782A

PATIENT
  Age: 31 Year
  Sex: Male

DRUGS (9)
  1. SEROXAT [Suspect]
     Route: 065
     Dates: start: 20010702, end: 20070601
  2. DOTHIEPIN HYDROCHLORIDE [Suspect]
  3. ALCOHOL [Suspect]
  4. DIAZEPAM [Concomitant]
     Dates: start: 19991021
  5. LORAZEPAM [Concomitant]
     Dates: start: 20041203
  6. ZOPICLONE [Concomitant]
  7. DIAZEPAM [Concomitant]
  8. STELAZINE [Concomitant]
  9. PERICYAZINE [Concomitant]

REACTIONS (43)
  - ABDOMINAL PAIN [None]
  - ABNORMAL DREAMS [None]
  - AFFECT LABILITY [None]
  - AGGRESSION [None]
  - AGITATION [None]
  - ANGER [None]
  - ANXIETY [None]
  - APPETITE DISORDER [None]
  - BALANCE DISORDER [None]
  - CHEST PAIN [None]
  - DIARRHOEA [None]
  - DISSOCIATION [None]
  - DISTURBANCE IN ATTENTION [None]
  - DRUG WITHDRAWAL SYNDROME [None]
  - DYSARTHRIA [None]
  - ELEVATED MOOD [None]
  - EMOTIONAL DISORDER [None]
  - FATIGUE [None]
  - FEELING OF DESPAIR [None]
  - HANGOVER [None]
  - HEADACHE [None]
  - HYPERHIDROSIS [None]
  - HYPERSOMNIA [None]
  - INFLUENZA LIKE ILLNESS [None]
  - INSOMNIA [None]
  - MANIA [None]
  - MEMORY IMPAIRMENT [None]
  - MOOD SWINGS [None]
  - NAUSEA [None]
  - NERVOUSNESS [None]
  - NIGHT SWEATS [None]
  - OVERDOSE [None]
  - PARAESTHESIA [None]
  - PARANOIA [None]
  - RESTLESS LEGS SYNDROME [None]
  - SUICIDAL BEHAVIOUR [None]
  - SUICIDAL IDEATION [None]
  - TEARFULNESS [None]
  - TENSION [None]
  - TREMOR [None]
  - VISION BLURRED [None]
  - VOMITING [None]
  - WEIGHT FLUCTUATION [None]
